FAERS Safety Report 16757374 (Version 3)
Quarter: 2019Q3

REPORT INFORMATION
  Report Type: Spontaneous
  Country: US (occurrence: US)
  Receive Date: 20190829
  Receipt Date: 20190912
  Transmission Date: 20191005
  Serious: No
  Sender: FDA-Public Use
  Company Number: US-AMGEN-USASP2019138148

PATIENT
  Age: 68 Year
  Sex: Female
  Weight: 78.2 kg

DRUGS (3)
  1. NEULASTA [Suspect]
     Active Substance: PEGFILGRASTIM
     Indication: NEUTROPENIA
     Dosage: 6 MILLIGRAM, Q3WK
     Route: 065
  2. NEULASTA [Suspect]
     Active Substance: PEGFILGRASTIM
     Dosage: 6 MILLIGRAM, Q3WK
     Route: 065
  3. NEULASTA [Suspect]
     Active Substance: PEGFILGRASTIM
     Dosage: 6 MILLIGRAM, Q3WK
     Route: 065

REACTIONS (5)
  - Accidental exposure to product [Unknown]
  - Application site haemorrhage [Unknown]
  - Wrong technique in product usage process [Unknown]
  - Application site discomfort [Unknown]
  - Device leakage [Unknown]

NARRATIVE: CASE EVENT DATE: 20190823
